FAERS Safety Report 8036764 (Version 3)
Quarter: 2017Q1

REPORT INFORMATION
  Report Type: Spontaneous
  Country: SE (occurrence: SE)
  Receive Date: 20110715
  Receipt Date: 20170309
  Transmission Date: 20170429
  Serious: Yes (Life-Threatening, Hospitalization, Other)
  Sender: FDA-Public Use
  Company Number: PHHY2011SE61862

PATIENT
  Age: 73 Year
  Sex: Male

DRUGS (14)
  1. ENALAPRIL [Concomitant]
     Active Substance: ENALAPRIL
     Indication: PRODUCT USED FOR UNKNOWN INDICATION
     Dosage: UNK
     Route: 065
  2. AMLODIPINE [Concomitant]
     Active Substance: AMLODIPINE BESYLATE
     Indication: PRODUCT USED FOR UNKNOWN INDICATION
     Route: 065
  3. SANDIMMUN NEORAL [Suspect]
     Active Substance: CYCLOSPORINE
     Indication: RENAL TRANSPLANT
     Dosage: 50 MG, QD
     Route: 065
     Dates: start: 1992
  4. CICLOSPORIN [Concomitant]
     Active Substance: CYCLOSPORINE
     Indication: PRODUCT USED FOR UNKNOWN INDICATION
     Route: 065
  5. PREDNISOLON PFIZER [Concomitant]
     Active Substance: PREDNISOLONE
     Indication: PRODUCT USED FOR UNKNOWN INDICATION
     Route: 065
  6. WARAN [Concomitant]
     Active Substance: WARFARIN SODIUM
     Indication: RENAL TRANSPLANT
     Dosage: 8.5DFW
     Route: 048
     Dates: start: 200901
  7. SANDIMMUN NEORAL [Suspect]
     Active Substance: CYCLOSPORINE
     Indication: PROPHYLAXIS
     Dosage: 50MGD
     Route: 048
     Dates: start: 1992
  8. METOPROLOL. [Concomitant]
     Active Substance: METOPROLOL
     Indication: PRODUCT USED FOR UNKNOWN INDICATION
     Dosage: UNK
     Route: 065
  9. FURIX [Concomitant]
     Active Substance: FUROSEMIDE
     Indication: PRODUCT USED FOR UNKNOWN INDICATION
     Dosage: 40 MG, UNK
     Route: 065
  10. SIMVASTATIN. [Suspect]
     Active Substance: SIMVASTATIN
     Indication: HYPERLIPIDAEMIA
     Dosage: 40 MG, QD
     Route: 048
     Dates: start: 200901, end: 20110312
  11. ALLOPURINOL. [Suspect]
     Active Substance: ALLOPURINOL
     Indication: PRODUCT USED FOR UNKNOWN INDICATION
     Dosage: 100 MG QD
     Route: 048
  12. WARAN [Concomitant]
     Active Substance: WARFARIN SODIUM
     Indication: PROPHYLAXIS
  13. SIMVASTATIN. [Interacting]
     Active Substance: SIMVASTATIN
     Indication: HYPERTRIGLYCERIDAEMIA
  14. ETALPHA [Concomitant]
     Active Substance: ALFACALCIDOL
     Indication: PRODUCT USED FOR UNKNOWN INDICATION
     Route: 065

REACTIONS (7)
  - Myopathy [Not Recovered/Not Resolved]
  - Myoglobin blood increased [Unknown]
  - Rhabdomyolysis [Recovered/Resolved]
  - Cardiac failure [Unknown]
  - Blood creatine phosphokinase increased [Unknown]
  - Myalgia [Recovered/Resolved]
  - Drug interaction [Unknown]

NARRATIVE: CASE EVENT DATE: 201103
